FAERS Safety Report 7658638-4 (Version None)
Quarter: 2011Q3

REPORT INFORMATION
  Report Type: 
  Country: None (occurrence: None)
  Receive Date: 20110805
  Receipt Date: 20081015
  Transmission Date: 20111222
  Serious: Yes (Disabling, Other)
  Sender: FDA-Public Use
  Company Number: US-BAYER-200820992NA

PATIENT
  Sex: Male
  Weight: 65.76 kg

DRUGS (56)
  1. OMNISCAN [Suspect]
     Dosage: 20 ML, ONCE
     Route: 042
     Dates: start: 20060424, end: 20060424
  2. OMNISCAN [Suspect]
     Dosage: 15 ML, ONCE
     Dates: start: 20061113, end: 20061113
  3. ZOLOFT [Concomitant]
  4. STEROID ANTIBACTERIALS [Concomitant]
  5. DECADRON [Concomitant]
  6. DILANTIN [Concomitant]
  7. LEUCOVORIN CALCIUM [Concomitant]
  8. FLOMAX [Concomitant]
  9. RITUXAN [Concomitant]
  10. METHOTREXATE [Concomitant]
  11. ZOFRAN [Concomitant]
  12. CASODEX [Concomitant]
  13. PSORCON [Concomitant]
  14. OMNISCAN [Suspect]
     Dosage: 20 ML, ONCE
     Dates: start: 20060519, end: 20060519
  15. CELLCEPT [Concomitant]
  16. PROTONIX [Concomitant]
  17. TAMSULOSIN HCL [Concomitant]
  18. CLARITIN [Concomitant]
  19. RENAGEL [Concomitant]
  20. ISOSORBIDE DINITRATE [Concomitant]
  21. ZANTAC [Concomitant]
  22. AMLODIPINE [Concomitant]
  23. AMBIEN [Concomitant]
  24. PHOSLO [Concomitant]
  25. COZAAR [Concomitant]
  26. VIREAD [Concomitant]
  27. NEURONTIN [Concomitant]
  28. ARANESP [Concomitant]
  29. LASIX [Concomitant]
  30. OMNISCAN [Suspect]
     Indication: NUCLEAR MAGNETIC RESONANCE IMAGING BRAIN
     Dosage: 20 ML, ONCE
     Dates: start: 20060404, end: 20060404
  31. OMNISCAN [Suspect]
     Dosage: 20 ML, ONCE
     Route: 042
     Dates: start: 20060807, end: 20060807
  32. COREG [Concomitant]
  33. PREDNISONE [Concomitant]
  34. NORVASC [Concomitant]
  35. BICALUTAMIDE [Concomitant]
  36. FERROUS SULFATE TAB [Concomitant]
  37. MAGNEVIST [Suspect]
     Indication: NUCLEAR MAGNETIC RESONANCE IMAGING
     Dosage: 15 ML, ONCE
     Route: 042
     Dates: start: 20060315, end: 20060315
  38. MAGNEVIST [Suspect]
     Indication: NUCLEAR MAGNETIC RESONANCE IMAGING BRAIN
     Dosage: 20 ML, ONCE
     Dates: start: 20060705, end: 20060705
  39. OMNISCAN [Suspect]
     Indication: NUCLEAR MAGNETIC RESONANCE IMAGING
     Dosage: 20 ML, ONCE
     Route: 042
     Dates: start: 20060402, end: 20060402
  40. OMNISCAN [Suspect]
     Dosage: 20 ML, ONCE
     Dates: start: 20060830, end: 20060830
  41. OMNISCAN [Suspect]
     Dosage: 20 ML, ONCE
     Dates: start: 20061016, end: 20061016
  42. EPIVIR [Concomitant]
  43. CALCIUM ACETATE [Concomitant]
  44. CARVEDILOL [Concomitant]
  45. TEMOZOLOMIDE [Concomitant]
  46. LEVAQUIN [Concomitant]
  47. OMNISCAN [Suspect]
     Dosage: 15 ML, ONCE
     Dates: start: 20060616, end: 20060616
  48. LOSARTAN POTASSIUM [Concomitant]
  49. NEPHROCAPS [Concomitant]
  50. PREVACID [Concomitant]
  51. POTASSIUM CHLORIDE [Concomitant]
  52. LUPRON [Concomitant]
  53. SENSIPAR [Concomitant]
  54. CALCITRIOL [Concomitant]
  55. SIMVASTATIN [Concomitant]
  56. SODIUM BICARBONATE [Concomitant]

REACTIONS (11)
  - SKIN FIBROSIS [None]
  - SCAR [None]
  - DEPRESSION [None]
  - NEPHROGENIC SYSTEMIC FIBROSIS [None]
  - EMOTIONAL DISTRESS [None]
  - ANXIETY [None]
  - PAIN [None]
  - FIBROSIS [None]
  - ABASIA [None]
  - INJURY [None]
  - DYSSTASIA [None]
